FAERS Safety Report 16135382 (Version 6)
Quarter: 2019Q2

REPORT INFORMATION
  Report Type: Spontaneous
  Country: US (occurrence: US)
  Receive Date: 20190329
  Receipt Date: 20190530
  Transmission Date: 20190711
  Serious: No
  Sender: FDA-Public Use
  Company Number: US-SA-2019SA084576

PATIENT
  Age: 72 Year
  Sex: Female

DRUGS (1)
  1. PRALUENT [Suspect]
     Active Substance: ALIROCUMAB
     Dosage: 75 MG, QOW
     Dates: start: 201811

REACTIONS (6)
  - Device use issue [Unknown]
  - Injection site pain [Unknown]
  - Pain in extremity [Unknown]
  - Injection site bruising [Unknown]
  - Sensitive skin [Unknown]
  - Product dose omission [Unknown]
